FAERS Safety Report 6819587-4 (Version None)
Quarter: 2010Q3

REPORT INFORMATION
  Report Type: 
  Country: None (occurrence: None)
  Receive Date: 20100701
  Receipt Date: 20091109
  Transmission Date: 20110219
  Serious: No
  Sender: FDA-Public Use
  Company Number: US-TEVA-209592USA

PATIENT
  Sex: Male
  Weight: 81.72 kg

DRUGS (11)
  1. AZILECT [Suspect]
     Indication: PARKINSON'S DISEASE
     Route: 048
  2. CIPROFLOXACIN [Interacting]
     Indication: PROPHYLAXIS URINARY TRACT INFECTION
     Route: 048
  3. CITALOPRAM HYDROBROMIDE [Concomitant]
  4. RIVASTIGMINE [Concomitant]
  5. FAMOTIDINE [Concomitant]
  6. METFORMIN HCL [Concomitant]
  7. MEMANTINE HCL [Concomitant]
  8. SIMVASTATIN [Concomitant]
  9. STALEVO 100 [Concomitant]
     Indication: PARKINSON'S DISEASE
  10. ACETYLSALICYLIC ACID [Concomitant]
  11. ACETAMINOPHEN [Concomitant]
     Indication: PAIN
     Route: 048

REACTIONS (4)
  - DRUG INTERACTION [None]
  - FALL [None]
  - MOVEMENT DISORDER [None]
  - MUSCLE RIGIDITY [None]
